FAERS Safety Report 10945230 (Version 1)
Quarter: 2015Q1

REPORT INFORMATION
  Report Type: Spontaneous
  Country: US (occurrence: US)
  Receive Date: 20150323
  Receipt Date: 20150323
  Transmission Date: 20150721
  Serious: Yes (Other)
  Sender: FDA-Public Use
  Company Number: US-MALLINCKRODT-T201501566

PATIENT
  Age: 20 Year
  Sex: Male
  Weight: 55 kg

DRUGS (1)
  1. METHYLIN [Suspect]
     Active Substance: METHYLPHENIDATE HYDROCHLORIDE
     Indication: ATTENTION DEFICIT/HYPERACTIVITY DISORDER
     Dosage: DOSAGE VARIED WITH AGE
     Route: 065

REACTIONS (1)
  - Testicular failure [Recovering/Resolving]
